FAERS Safety Report 7907779-2 (Version None)
Quarter: 2011Q4

REPORT INFORMATION
  Report Type: 
  Country: None (occurrence: None)
  Receive Date: 20111110
  Receipt Date: 20111025
  Transmission Date: 20120403
  Serious: No
  Sender: FDA-Public Use
  Company Number: BR-US-EMD SERONO, INC.-7092086

PATIENT
  Sex: Female

DRUGS (4)
  1. ACETAMINOPHEN [Concomitant]
     Indication: PREMEDICATION
  2. REBIF [Suspect]
     Indication: PRODUCT USED FOR UNKNOWN INDICATION
     Dates: start: 20040330
  3. DONAREN [Concomitant]
  4. OMEPRAZOLE [Concomitant]

REACTIONS (4)
  - SOMNOLENCE [None]
  - BLOOD PRESSURE INCREASED [None]
  - RHINORRHOEA [None]
  - INFLUENZA LIKE ILLNESS [None]
